FAERS Safety Report 21567562 (Version 1)
Quarter: 2022Q4

REPORT INFORMATION
  Report Type: Spontaneous
  Country: GB (occurrence: None)
  Receive Date: 20221108
  Receipt Date: 20221108
  Transmission Date: 20230113
  Serious: Yes (Other)
  Sender: FDA-Public Use
  Company Number: 2022A362436

PATIENT

DRUGS (2)
  1. ROSUVASTATIN [Suspect]
     Active Substance: ROSUVASTATIN
     Indication: Blood cholesterol increased
     Dosage: 5MG TABLET X1 PER DAY; ;
     Route: 048
     Dates: start: 20221012
  2. EZETIMIBE [Suspect]
     Active Substance: EZETIMIBE
     Route: 065
     Dates: start: 20221012

REACTIONS (2)
  - Dyspnoea [Not Recovered/Not Resolved]
  - Dizziness exertional [Not Recovered/Not Resolved]

NARRATIVE: CASE EVENT DATE: 20221028
